FAERS Safety Report 9086924 (Version 2)
Quarter: 2013Q1

REPORT INFORMATION
  Report Type: Spontaneous
  Country: BR (occurrence: BR)
  Receive Date: 20130131
  Receipt Date: 20130304
  Transmission Date: 20140127
  Serious: Yes (Other)
  Sender: FDA-Public Use
  Company Number: BR-PFIZER INC-2012214095

PATIENT
  Age: 65 Year
  Sex: Female
  Weight: 58 kg

DRUGS (5)
  1. SUTENT [Suspect]
     Indication: RENAL CANCER
     Dosage: 50 MG (ONE CAPSULE), 1X/DAY
     Route: 048
     Dates: start: 20120425
  2. PROPANOLOL [Concomitant]
     Dosage: 40 MG, 1X/DAY
  3. COVERSYL [Concomitant]
     Dosage: 1 DF, 1X/DAY
  4. NEOSALDINA [Concomitant]
  5. TYLENOL [Concomitant]

REACTIONS (3)
  - Hernia [Unknown]
  - Blood pressure increased [Unknown]
  - Immune system disorder [Unknown]
